FAERS Safety Report 5834428-X (Version None)
Quarter: 2008Q3

REPORT INFORMATION
  Report Type: 
  Country: None (occurrence: None)
  Receive Date: 20080805
  Receipt Date: 20080729
  Transmission Date: 20090109
  Serious: Yes (Other)
  Sender: FDA-Public Use
  Company Number: JP-PFIZER INC-2008060892

PATIENT
  Age: 55 Year
  Sex: Female

DRUGS (2)
  1. ATARAX [Suspect]
     Indication: EMERGENCY CARE
     Dosage: DAILY DOSE:25MG
     Route: 030
     Dates: start: 20080712, end: 20080712
  2. PENTAZOCINE LACTATE [Suspect]
     Indication: EMERGENCY CARE
     Dosage: DAILY DOSE:15MG
     Route: 030
     Dates: start: 20080712, end: 20080712

REACTIONS (2)
  - INJECTION SITE INDURATION [None]
  - INJECTION SITE ULCER [None]
